FAERS Safety Report 8516740-9 (Version None)
Quarter: 2012Q2

REPORT INFORMATION
  Report Type: 
  Country: None (occurrence: None)
  Receive Date: 20120406
  Receipt Date: 20101019
  Transmission Date: 20120825
  Serious: Yes (Hospitalization)
  Sender: FDA-Public Use
  Company Number: PHHY2010US69972

PATIENT
  Age: 13 Year
  Sex: Female
  Weight: 44 kg

DRUGS (5)
  1. TASIGNA [Suspect]
     Indication: CHRONIC MYELOID LEUKAEMIA
     Dosage: 400 MG IN MORNING, ORAL 200 MG IN MORNING, ORAL
     Route: 048
     Dates: start: 20100528, end: 20100628
  2. TASIGNA [Suspect]
     Indication: CHRONIC MYELOID LEUKAEMIA
     Dosage: 400 MG IN MORNING, ORAL 200 MG IN MORNING, ORAL
     Route: 048
     Dates: start: 20100528, end: 20100628
  3. BACTRIM [Concomitant]
  4. ONDANSETRON [Concomitant]
  5. VITAMIN D [Concomitant]

REACTIONS (3)
  - NEOPLASM PROGRESSION [None]
  - NEOPLASM MALIGNANT [None]
  - BLAST CELL CRISIS [None]
